FAERS Safety Report 9012040 (Version 3)
Quarter: 2013Q3

REPORT INFORMATION
  Report Type: Spontaneous
  Country: US (occurrence: US)
  Receive Date: 20130114
  Receipt Date: 20130722
  Transmission Date: 20140515
  Serious: Yes (Hospitalization)
  Sender: FDA-Public Use
  Company Number: US-BAYER-2013-002283

PATIENT
  Age: 27 Year
  Sex: Female
  Weight: 79 kg

DRUGS (8)
  1. YASMIN [Suspect]
     Indication: ACNE
     Dosage: UNK
     Dates: start: 2005, end: 2008
  2. YASMIN [Suspect]
     Indication: PREMENSTRUAL SYNDROME
  3. ALBUTEROL [Concomitant]
     Indication: DYSPNOEA
     Dosage: 90 MCG, 2 PUFFS EVERY 8 HOURS PRN
     Route: 045
  4. BENZONATATE [Concomitant]
     Indication: BRONCHITIS
     Dosage: 100 MG, UNK
     Route: 048
  5. AZITHROMYCIN [Concomitant]
     Indication: BRONCHITIS
     Dosage: 250 MG, UNK
     Route: 048
     Dates: start: 20080508
  6. ZYRTEC [Concomitant]
     Indication: CONTRACEPTION
     Dosage: UNK
     Dates: start: 2002
  7. ZYRTEC [Concomitant]
     Indication: MULTIPLE ALLERGIES
  8. CONCERTA [Concomitant]
     Indication: ATTENTION DEFICIT/HYPERACTIVITY DISORDER
     Dosage: UNK
     Dates: start: 2005, end: 2011

REACTIONS (5)
  - Deep vein thrombosis [None]
  - Pain [None]
  - Pain [None]
  - Post-traumatic stress disorder [None]
  - Off label use [None]
